FAERS Safety Report 8597723-X (Version None)
Quarter: 2012Q3

REPORT INFORMATION
  Report Type: 
  Country: None (occurrence: None)
  Receive Date: 20120816
  Receipt Date: 20120806
  Transmission Date: 20120928
  Serious: Yes (Other)
  Sender: FDA-Public Use
  Company Number: PHHY2012BR069203

PATIENT
  Age: 77 Year
  Sex: Male

DRUGS (2)
  1. DIOVAN [Suspect]
     Indication: HYPERTENSION
     Dosage: 160 MG, UNK
  2. FORADIL [Suspect]
     Indication: ASTHMA
     Dosage: UNK UKN, BID

REACTIONS (4)
  - BRONCHOSPASM [None]
  - ASTHMA [None]
  - FATIGUE [None]
  - DYSPNOEA [None]
